FAERS Safety Report 9841970 (Version 1)
Quarter: 2014Q1

REPORT INFORMATION
  Report Type: Spontaneous
  Country: US (occurrence: US)
  Receive Date: 20140124
  Receipt Date: 20140124
  Transmission Date: 20141002
  Serious: No
  Sender: FDA-Public Use
  Company Number: US-BAUSCH-BL-2013-006864

PATIENT
  Age: 85 Year
  Sex: Male
  Weight: 83.99 kg

DRUGS (1)
  1. PROLENSA (BROMFENAC OPHTHALMIC SOLUTION) 0.07% [Suspect]
     Indication: PRODUCT USED FOR UNKNOWN INDICATION
     Dosage: ONE DROP; RIGHT EYE; ONCE DAILY
     Route: 047
     Dates: start: 20131121

REACTIONS (1)
  - Eye irritation [Recovered/Resolved]
